FAERS Safety Report 5740915-5 (Version None)
Quarter: 2008Q2

REPORT INFORMATION
  Report Type: 
  Country: None (occurrence: None)
  Receive Date: 20080516
  Receipt Date: 20080502
  Transmission Date: 20081010
  Serious: Yes (Hospitalization)
  Sender: FDA-Public Use
  Company Number: GB-GENENTECH-260684

PATIENT
  Sex: Male
  Weight: 67 kg

DRUGS (4)
  1. BEVACIZUMAB [Suspect]
     Indication: COLON CANCER
     Dosage: 494 MG, Q3W
     Route: 042
     Dates: start: 20080124, end: 20080306
  2. XELODA [Suspect]
     Indication: COLON CANCER
     Dosage: 2000 MG, Q3W
     Route: 048
     Dates: start: 20080124, end: 20080306
  3. METOCLOPRAMIDE [Concomitant]
     Indication: DRUG USE FOR UNKNOWN INDICATION
     Dates: start: 20080124
  4. LOPERAMIDE HCL [Concomitant]
     Indication: DRUG USE FOR UNKNOWN INDICATION
     Dates: start: 20080124

REACTIONS (3)
  - ABDOMINAL PAIN [None]
  - INTESTINAL OBSTRUCTION [None]
  - SMALL INTESTINAL OBSTRUCTION [None]
